FAERS Safety Report 4660262-2 (Version None)
Quarter: 2005Q2

REPORT INFORMATION
  Report Type: 
  Country: None (occurrence: None)
  Receive Date: 20050512
  Receipt Date: 20050406
  Transmission Date: 20051028
  Serious: Yes (Other)
  Sender: FDA-Public Use
  Company Number: US-GLAXOSMITHKLINE-A0552943A

PATIENT
  Age: 51 Year
  Sex: Female

DRUGS (1)
  1. ABREVA [Suspect]
     Indication: HERPES SIMPLEX
     Route: 061
     Dates: start: 20050405, end: 20050405

REACTIONS (6)
  - DYSPHAGIA [None]
  - LIP BLISTER [None]
  - PAIN IN JAW [None]
  - PALLOR [None]
  - PARAESTHESIA [None]
  - SWELLING FACE [None]
